FAERS Safety Report 11927830 (Version 4)
Quarter: 2016Q1

REPORT INFORMATION
  Report Type: Spontaneous
  Country: TW (occurrence: TW)
  Receive Date: 20160119
  Receipt Date: 20160129
  Transmission Date: 20160526
  Serious: Yes (Death, Hospitalization)
  Sender: FDA-Public Use
  Company Number: TW-B.I. PHARMACEUTICALS,INC./RIDGEFIELD-2016-BI-02734RF

PATIENT
  Age: 81 Year
  Sex: Male

DRUGS (3)
  1. PRADAXA [Suspect]
     Active Substance: DABIGATRAN ETEXILATE MESYLATE
     Indication: THROMBOSIS PROPHYLAXIS
  2. PRADAXA [Suspect]
     Active Substance: DABIGATRAN ETEXILATE MESYLATE
     Indication: ATRIAL FIBRILLATION
  3. PRADAXA [Suspect]
     Active Substance: DABIGATRAN ETEXILATE MESYLATE
     Indication: CEREBROVASCULAR ACCIDENT PROPHYLAXIS
     Dosage: 220 MG
     Route: 048

REACTIONS (8)
  - Lower gastrointestinal haemorrhage [Fatal]
  - Haematochezia [Unknown]
  - Prothrombin time prolonged [Unknown]
  - Abdominal pain [Unknown]
  - Shock haemorrhagic [Fatal]
  - Infection [Unknown]
  - Disseminated intravascular coagulation [Fatal]
  - Activated partial thromboplastin time prolonged [Unknown]
